FAERS Safety Report 9799584 (Version 2)
Quarter: 2014Q1

REPORT INFORMATION
  Report Type: Spontaneous
  Country: US (occurrence: US)
  Receive Date: 20140106
  Receipt Date: 20140106
  Transmission Date: 20141002
  Serious: No
  Sender: FDA-Public Use
  Company Number: US-GILEAD-2010-0031396

PATIENT
  Age: 61 Year
  Sex: Female
  Weight: 89.81 kg

DRUGS (19)
  1. LETAIRIS [Suspect]
     Indication: PULMONARY ARTERIAL HYPERTENSION
     Route: 048
     Dates: start: 20070901
  2. COUMADIN [Concomitant]
  3. TOPROL XL [Concomitant]
  4. DIGOXIN [Concomitant]
  5. FUROSEMIDE [Concomitant]
  6. VIAGRA [Concomitant]
  7. SYMBICORT [Concomitant]
  8. SPIRIVA [Concomitant]
  9. OXYGEN [Concomitant]
  10. FLONASE [Concomitant]
  11. ALBUTEROL AER [Concomitant]
  12. LOMOTIL [Concomitant]
  13. TUMS [Concomitant]
  14. TYLENOL/COD TAB#3 [Concomitant]
  15. K-DUR [Concomitant]
  16. CLONAZEPAM [Concomitant]
  17. FLUOXETINE [Concomitant]
  18. AMBIEN CR [Concomitant]
  19. ZYLET [Concomitant]

REACTIONS (1)
  - Rash [Unknown]
